FAERS Safety Report 18845229 (Version 3)
Quarter: 2022Q2

REPORT INFORMATION
  Report Type: Report from Study
  Country: US (occurrence: US)
  Receive Date: 20210204
  Receipt Date: 20220625
  Transmission Date: 20220721
  Serious: Yes (Other)
  Sender: FDA-Public Use
  Company Number: US-BAXTER-2015BAX009159

PATIENT
  Age: 4 Year
  Sex: Male

DRUGS (2)
  1. HUMAN IMMUNOGLOBULIN G [Suspect]
     Active Substance: HUMAN IMMUNOGLOBULIN G
     Indication: Immunodeficiency common variable
     Dosage: 2 GRAM, 1/WEEK
     Route: 058
     Dates: start: 20150211
  2. HUMAN IMMUNOGLOBULIN G [Suspect]
     Active Substance: HUMAN IMMUNOGLOBULIN G
     Indication: Primary immunodeficiency syndrome
     Dosage: 30 GRAM, 1/WEEK
     Route: 058
     Dates: start: 20150211

REACTIONS (7)
  - Nasopharyngitis [Recovered/Resolved]
  - Epistaxis [Recovered/Resolved]
  - Illness [Not Recovered/Not Resolved]
  - Weight increased [Unknown]
  - Product dose omission issue [Unknown]
  - Blood immunoglobulin A decreased [Unknown]
  - Blood immunoglobulin M decreased [Unknown]

NARRATIVE: CASE EVENT DATE: 20150212
